FAERS Safety Report 9089341 (Version 1)
Quarter: 2013Q1

REPORT INFORMATION
  Report Type: Spontaneous
  Country: US (occurrence: US)
  Receive Date: 20130201
  Receipt Date: 20130201
  Transmission Date: 20140127
  Serious: No
  Sender: FDA-Public Use
  Company Number: US-B.I. PHARMACEUTICALS,INC./RIDGEFIELD-2013-BI-02515BP

PATIENT
  Age: 61 Year
  Sex: Female
  Weight: 88 kg

DRUGS (2)
  1. MIRAPEX [Suspect]
     Indication: PARKINSON^S DISEASE
     Dosage: 1.5 MG
     Route: 048
     Dates: start: 2007
  2. MIRAPEX [Suspect]
     Indication: PARKINSON^S DISEASE
     Dosage: 1.5 MG
     Route: 048
     Dates: start: 20130125, end: 20130126

REACTIONS (6)
  - Insomnia [Recovered/Resolved]
  - Muscle spasms [Recovered/Resolved]
  - Abdominal pain upper [Recovered/Resolved]
  - Diarrhoea [Recovered/Resolved]
  - Influenza like illness [Recovered/Resolved]
  - Muscular weakness [Recovered/Resolved]
